FAERS Safety Report 5743486-2 (Version None)
Quarter: 2008Q2

REPORT INFORMATION
  Report Type: 
  Country: None (occurrence: None)
  Receive Date: 20080520
  Receipt Date: 20080508
  Transmission Date: 20081010
  Serious: Yes (Death, Hospitalization)
  Sender: FDA-Public Use
  Company Number: US-JNJFOC-20071204484

PATIENT
  Sex: Male
  Weight: 121.11 kg

DRUGS (5)
  1. REMICADE [Suspect]
     Indication: RHEUMATOID ARTHRITIS
     Route: 042
  2. BACLOFEN [Concomitant]
  3. RELAFEN [Concomitant]
     Indication: RHEUMATOID ARTHRITIS
  4. ADVAIR DISKUS 100/50 [Concomitant]
     Indication: CHRONIC OBSTRUCTIVE PULMONARY DISEASE
     Dosage: 250/50
  5. LYRICA [Concomitant]
     Indication: NEUROPATHY PERIPHERAL

REACTIONS (3)
  - DEATH [None]
  - MULTI-ORGAN FAILURE [None]
  - SEPTIC SHOCK [None]
